FAERS Safety Report 9733303 (Version 1)
Quarter: 2013Q4

REPORT INFORMATION
  Report Type: Report from Study
  Country: CA (occurrence: CA)
  Receive Date: 20131205
  Receipt Date: 20131205
  Transmission Date: 20140711
  Serious: Yes (Other)
  Sender: FDA-Public Use
  Company Number: CA-UCBSA-104513

PATIENT
  Age: 40 Year
  Sex: Male
  Weight: 90.7 kg

DRUGS (2)
  1. CIMZIA [Suspect]
     Indication: PSORIATIC ARTHROPATHY
     Dosage: 0-2-4 WEEKS
     Route: 058
     Dates: start: 20131031
  2. PREDNISONE [Concomitant]
     Indication: PSORIATIC ARTHROPATHY
     Route: 048
     Dates: start: 201309

REACTIONS (1)
  - Rash generalised [Recovered/Resolved]
